FAERS Safety Report 26065946 (Version 1)
Quarter: 2025Q4

REPORT INFORMATION
  Report Type: Report from Study
  Country: US (occurrence: US)
  Receive Date: 20251119
  Receipt Date: 20251119
  Transmission Date: 20260117
  Serious: No
  Sender: MALLINCKRODT
  Company Number: US-MALLINCKRODT-MNK202506851

PATIENT
  Age: 80 Year
  Sex: Male

DRUGS (1)
  1. CORTICOTROPIN [Suspect]
     Active Substance: CORTICOTROPIN
     Indication: Keratitis
     Dosage: 80 UNITS
     Dates: start: 20251015

REACTIONS (5)
  - Mood swings [Recovering/Resolving]
  - Asthenia [Unknown]
  - Fluid retention [Recovering/Resolving]
  - Eye infection [Unknown]
  - Depression [Unknown]

NARRATIVE: CASE EVENT DATE: 20251001
